FAERS Safety Report 5808477-1 (Version None)
Quarter: 2008Q3

REPORT INFORMATION
  Report Type: 
  Country: None (occurrence: None)
  Receive Date: 20080710
  Receipt Date: 20080710
  Transmission Date: 20090109
  Serious: Yes (Other)
  Sender: FDA-Public Use
  Company Number: None

PATIENT
  Sex: Female
  Weight: 53.5244 kg

DRUGS (1)
  1. CLIMARA [Suspect]
     Indication: ARTIFICIAL MENOPAUSE
     Dosage: .75 ONCE WEEKLY PATCH
     Dates: start: 20080602

REACTIONS (5)
  - APPLICATION SITE ERYTHEMA [None]
  - APPLICATION SITE RASH [None]
  - APPLICATION SITE URTICARIA [None]
  - PHARMACEUTICAL PRODUCT COMPLAINT [None]
  - THERAPEUTIC RESPONSE UNEXPECTED WITH DRUG SUBSTITUTION [None]
